FAERS Safety Report 7220120-6 (Version None)
Quarter: 2011Q1

REPORT INFORMATION
  Report Type: 
  Country: None (occurrence: None)
  Receive Date: 20110111
  Receipt Date: 20101230
  Transmission Date: 20110831
  Serious: Yes (Other)
  Sender: FDA-Public Use
  Company Number: PHHY2010DE89994

PATIENT
  Age: 17 Week
  Sex: Female

DRUGS (2)
  1. PROPRANOLOL [Suspect]
     Dosage: 2 MG/KG PER DAY
     Route: 048
  2. PROPRANOLOL [Suspect]
     Indication: HAEMANGIOMA
     Dosage: 1 MG/KG PER DAY DIVIDED INTO 3 DOSES
     Route: 048

REACTIONS (7)
  - HYPERKALAEMIA [None]
  - HYPOTENSION [None]
  - BLOOD LACTATE DEHYDROGENASE INCREASED [None]
  - STAPHYLOCOCCAL INFECTION [None]
  - C-REACTIVE PROTEIN INCREASED [None]
  - PYREXIA [None]
  - WHITE BLOOD CELL COUNT INCREASED [None]
